FAERS Safety Report 5416964-3 (Version None)
Quarter: 2007Q3

REPORT INFORMATION
  Report Type: 
  Country: None (occurrence: None)
  Receive Date: 20070816
  Receipt Date: 20070806
  Transmission Date: 20080115
  Serious: Yes (Disabling)
  Sender: FDA-Public Use
  Company Number: BR-PFIZER INC-2007066228

PATIENT
  Age: 67 Year
  Sex: Female

DRUGS (3)
  1. DIABINESE [Suspect]
     Indication: DIABETES MELLITUS
     Route: 048
  2. ANTIDEPRESSANTS [Concomitant]
  3. ANTIHYPERTENSIVES [Concomitant]

REACTIONS (1)
  - OEDEMA PERIPHERAL [None]
